FAERS Safety Report 4927933-1 (Version None)
Quarter: 2006Q1

REPORT INFORMATION
  Report Type: 
  Country: None (occurrence: None)
  Receive Date: 20060223
  Receipt Date: 20060217
  Transmission Date: 20060701
  Serious: Yes (Hospitalization)
  Sender: FDA-Public Use
  Company Number: 2006024062

PATIENT
  Age: 71 Year
  Sex: Male
  Weight: 79 kg

DRUGS (10)
  1. TAHOR (ATORVASTATIN) [Suspect]
     Indication: ILL-DEFINED DISORDER
     Dosage: 10 MG (1 D), ORAL
     Route: 048
     Dates: end: 20051214
  2. FLOCTAFENINE (FLOCTAFENINE) [Suspect]
     Indication: BACK PAIN
     Dosage: 600 MG (1 D), ORAL
     Route: 048
     Dates: end: 20051214
  3. FLOCTAFENINE (FLOCTAFENINE) [Suspect]
     Indication: BONE PAIN
     Dosage: 600 MG (1 D), ORAL
     Route: 048
     Dates: end: 20051214
  4. ACETAMINOPHEN W/ PROPOXYPHENE HCL [Concomitant]
  5. FLUINDIONE (FLUINDIONE) [Concomitant]
  6. COVERSYL (PERINDOPRIL) [Concomitant]
  7. ALENDRONIC ACID (ALENDRONIC ACID) [Concomitant]
  8. BROMAZEPAM (BROMAZEPAM) [Concomitant]
  9. BUDESONIDE [Concomitant]
  10. PERMIXON (SERENOA REPENS) [Concomitant]

REACTIONS (4)
  - ALANINE AMINOTRANSFERASE INCREASED [None]
  - ASPARTATE AMINOTRANSFERASE INCREASED [None]
  - BLOOD ALKALINE PHOSPHATASE INCREASED [None]
  - GAMMA-GLUTAMYLTRANSFERASE INCREASED [None]
